FAERS Safety Report 4909285-6 (Version None)
Quarter: 2006Q1

REPORT INFORMATION
  Report Type: 
  Country: None (occurrence: None)
  Receive Date: 20060208
  Receipt Date: 20060127
  Transmission Date: 20060701
  Serious: Yes (Death, Hospitalization)
  Sender: FDA-Public Use
  Company Number: 2006014338

PATIENT
  Sex: Female

DRUGS (1)
  1. LIPITOR [Suspect]
     Indication: VASCULAR BYPASS GRAFT
     Dosage: (20 MG)

REACTIONS (4)
  - ANKLE FRACTURE [None]
  - ASTHENIA [None]
  - FALL [None]
  - PULMONARY FIBROSIS [None]
